FAERS Safety Report 6603522-8 (Version None)
Quarter: 2010Q1

REPORT INFORMATION
  Report Type: 
  Country: None (occurrence: None)
  Receive Date: 20100226
  Receipt Date: 20090818
  Transmission Date: 20100710
  Serious: No
  Sender: FDA-Public Use
  Company Number: A0803814A

PATIENT
  Sex: Female

DRUGS (1)
  1. VALTREX [Suspect]
     Indication: ORAL HERPES
     Dosage: 500MG UNKNOWN
     Route: 048

REACTIONS (2)
  - MEDICATION ERROR [None]
  - PARAESTHESIA ORAL [None]
